FAERS Safety Report 4576647-9 (Version None)
Quarter: 2005Q1

REPORT INFORMATION
  Report Type: 
  Country: None (occurrence: None)
  Receive Date: 20050127
  Receipt Date: 20041119
  Transmission Date: 20050727
  Serious: No
  Sender: FDA-Public Use
  Company Number: USA041184177

PATIENT
  Age: 35 Year
  Sex: Female

DRUGS (1)
  1. STRATTERA [Suspect]
     Indication: ATTENTION DEFICIT/HYPERACTIVITY DISORDER
     Dosage: 40 MG DAY
     Dates: start: 20041109

REACTIONS (5)
  - ANOREXIA [None]
  - FEELING ABNORMAL [None]
  - MENSTRUAL DISORDER [None]
  - MENSTRUATION IRREGULAR [None]
  - NAUSEA [None]
